FAERS Safety Report 7070463-4 (Version None)
Quarter: 2010Q4

REPORT INFORMATION
  Report Type: 
  Country: None (occurrence: None)
  Receive Date: 20101028
  Receipt Date: 20101028
  Transmission Date: 20110411
  Serious: Yes (Other)
  Sender: FDA-Public Use
  Company Number: None

PATIENT
  Sex: Male
  Weight: 63.5036 kg

DRUGS (1)
  1. SUBOXONE FILM + NALOXONE 8 MG / 2 MG [Suspect]
     Indication: DRUG WITHDRAWAL SYNDROME
     Dosage: 8 MG /2 MG 3 DAY ORAL MEDS DESTROYED
     Route: 048
     Dates: start: 20101006, end: 20101008

REACTIONS (11)
  - BACK PAIN [None]
  - CONSTIPATION [None]
  - DIZZINESS [None]
  - HEADACHE [None]
  - HYPOAESTHESIA ORAL [None]
  - INSOMNIA [None]
  - NAUSEA [None]
  - POISONING [None]
  - RESPIRATORY RATE DECREASED [None]
  - VISUAL IMPAIRMENT [None]
  - VOMITING [None]
